FAERS Safety Report 11187181 (Version 1)
Quarter: 2015Q2

REPORT INFORMATION
  Report Type: Spontaneous
  Country: US (occurrence: US)
  Receive Date: 20150615
  Receipt Date: 20150615
  Transmission Date: 20150821
  Serious: No
  Sender: FDA-Public Use
  Company Number: US-JNJFOC-20150509574

PATIENT
  Age: 16 Year
  Sex: Female
  Weight: 54.89 kg

DRUGS (2)
  1. ORTHO TRI CYCLEN LO [Suspect]
     Active Substance: ETHINYL ESTRADIOL\NORGESTIMATE
     Indication: HORMONE LEVEL ABNORMAL
     Route: 048
     Dates: start: 201503
  2. ORTHO TRI CYCLEN LO [Suspect]
     Active Substance: ETHINYL ESTRADIOL\NORGESTIMATE
     Indication: HORMONE LEVEL ABNORMAL
     Route: 048
     Dates: start: 201301, end: 201411

REACTIONS (4)
  - Off label use [Not Recovered/Not Resolved]
  - Increased appetite [Recovered/Resolved]
  - Drug dose omission [Unknown]
  - Weight increased [Recovered/Resolved]

NARRATIVE: CASE EVENT DATE: 201301
